FAERS Safety Report 5400039-3 (Version None)
Quarter: 2007Q3

REPORT INFORMATION
  Report Type: 
  Country: None (occurrence: None)
  Receive Date: 20070726
  Receipt Date: 20070726
  Transmission Date: 20080115
  Serious: Yes (Hospitalization)
  Sender: FDA-Public Use
  Company Number: None

PATIENT
  Age: 64 Year
  Sex: Female

DRUGS (16)
  1. TEGRETOL [Suspect]
     Indication: CONVULSION
     Dosage: 400 MG Q 8 PO GIVEN FOR MAINTENANCE PTA
     Route: 048
  2. COLACE [Concomitant]
  3. M.V.I. [Concomitant]
  4. DIOVAN [Concomitant]
  5. DETROL LA [Concomitant]
  6. NORVASC [Concomitant]
  7. SYNTHROID [Concomitant]
  8. TEGRETOL [Concomitant]
  9. CALCIUM CARBONATE [Concomitant]
  10. FOSAMAX [Concomitant]
  11. PROTONIX [Concomitant]
  12. DECADRON [Concomitant]
  13. NASONEX [Concomitant]
  14. AMITRIPTYLINE HCL [Concomitant]
  15. LIBRIUM [Concomitant]
  16. ASPIRIN [Concomitant]

REACTIONS (2)
  - BONE GRAFT [None]
  - HYPONATRAEMIA [None]
